FAERS Safety Report 5986042-3 (Version None)
Quarter: 2008Q4

REPORT INFORMATION
  Report Type: 
  Country: None (occurrence: None)
  Receive Date: 20081203
  Receipt Date: 20081203
  Transmission Date: 20090506
  Serious: No
  Sender: FDA-Public Use
  Company Number: None

PATIENT
  Age: 72 Year
  Sex: Male
  Weight: 68.0396 kg

DRUGS (2)
  1. ZEMURON [Suspect]
     Indication: ANAESTHESIA
     Dosage: 70MG 50 MG INITIAL 20 MG IV
     Route: 042
     Dates: start: 20081125, end: 20081125
  2. POTENCY TEST [Concomitant]

REACTIONS (1)
  - DRUG INEFFECTIVE [None]
